FAERS Safety Report 6381246-2 (Version None)
Quarter: 2009Q3

REPORT INFORMATION
  Report Type: 
  Country: None (occurrence: None)
  Receive Date: 20090928
  Receipt Date: 20090910
  Transmission Date: 20100115
  Serious: Yes (Hospitalization, Other)
  Sender: FDA-Public Use
  Company Number: JP-1170804

PATIENT
  Age: 53 Year
  Sex: Female

DRUGS (1)
  1. TRAVATAN Z       (TRAVOPROST) [Suspect]
     Indication: OPEN ANGLE GLAUCOMA
     Dosage: 1 GTT QD OU
     Route: 047
     Dates: start: 20090604, end: 20090710

REACTIONS (2)
  - CONDITION AGGRAVATED [None]
  - DETACHMENT OF RETINAL PIGMENT EPITHELIUM [None]
